FAERS Safety Report 4417061-6 (Version None)
Quarter: 2004Q3

REPORT INFORMATION
  Report Type: 
  Country: None (occurrence: None)
  Receive Date: 20040802
  Receipt Date: 20040329
  Transmission Date: 20050211
  Serious: Yes (Hospitalization, Other)
  Sender: FDA-Public Use
  Company Number: US-JNJFOC-20040400186

PATIENT
  Age: 21 Year
  Sex: Female

DRUGS (3)
  1. MYCELEX TROCHE (CLOTRIMAZOLE) TROCHE [Suspect]
     Dosage: 10 MG, 3 IN 1 DAY
     Dates: start: 20040312
  2. SEROQUEL [Suspect]
  3. ZYPREXA [Concomitant]

REACTIONS (3)
  - CHEST PAIN [None]
  - DRUG INTERACTION [None]
  - MUSCLE TIGHTNESS [None]
